FAERS Safety Report 11921047 (Version 1)
Quarter: 2016Q1

REPORT INFORMATION
  Report Type: Spontaneous
  Country: US (occurrence: US)
  Receive Date: 20160115
  Receipt Date: 20160115
  Transmission Date: 20160526
  Serious: No
  Sender: FDA-Public Use
  Company Number: US-WATSON-2015-13288

PATIENT
  Age: 44 Year
  Sex: Female

DRUGS (2)
  1. CLONAZEPAM (WATSON LABORATORIES) [Suspect]
     Active Substance: CLONAZEPAM
     Indication: INSOMNIA
     Dosage: 2 MG,AT BEDTIME
     Route: 048
     Dates: start: 2011
  2. PAXIL [Concomitant]
     Active Substance: PAROXETINE HYDROCHLORIDE
     Dosage: 12.5 MG, DAILY
     Route: 065

REACTIONS (2)
  - Throat irritation [Recovering/Resolving]
  - Dyspnoea [Recovering/Resolving]
